FAERS Safety Report 7815554-2 (Version None)
Quarter: 2011Q4

REPORT INFORMATION
  Report Type: 
  Country: None (occurrence: None)
  Receive Date: 20111014
  Receipt Date: 20111013
  Transmission Date: 20120403
  Serious: Yes (Death)
  Sender: FDA-Public Use
  Company Number: US-B.I. PHARMACEUTICALS,INC./RIDGEFIELD-2011-BP-24175BP

PATIENT
  Age: 63 Year
  Sex: Male

DRUGS (1)
  1. ATROVENT HFA [Suspect]

REACTIONS (1)
  - DEATH [None]
